FAERS Safety Report 13941317 (Version 1)
Quarter: 2017Q3

REPORT INFORMATION
  Report Type: Spontaneous
  Country: FR (occurrence: FR)
  Receive Date: 20170906
  Receipt Date: 20170906
  Transmission Date: 20171127
  Serious: Yes (Other)
  Sender: FDA-Public Use
  Company Number: FR-BAYER-2017-165784

PATIENT
  Age: 36 Year
  Sex: Female

DRUGS (1)
  1. MIRENA [Suspect]
     Active Substance: LEVONORGESTREL
     Indication: CONTRACEPTION
     Dosage: 20 MCG/24HR, CONT
     Route: 015
     Dates: start: 20110612, end: 20170312

REACTIONS (16)
  - Abdominal distension [Recovered/Resolved]
  - Tachycardia [Recovered/Resolved]
  - Breast pain [Recovering/Resolving]
  - Peripheral swelling [Recovering/Resolving]
  - Affective disorder [Unknown]
  - Tendonitis [Recovering/Resolving]
  - Night sweats [Recovering/Resolving]
  - Gastrointestinal motility disorder [Recovered/Resolved]
  - Back pain [Recovering/Resolving]
  - Asthenia [Recovering/Resolving]
  - Insomnia [Recovering/Resolving]
  - Stress [Recovered/Resolved]
  - Libido decreased [Recovering/Resolving]
  - Infection [Recovered/Resolved]
  - Diffuse alopecia [Not Recovered/Not Resolved]
  - Depression [Unknown]

NARRATIVE: CASE EVENT DATE: 201107
